FAERS Safety Report 15101289 (Version 8)
Quarter: 2019Q3

REPORT INFORMATION
  Report Type: Spontaneous
  Country: FR (occurrence: FR)
  Receive Date: 20180703
  Receipt Date: 20190910
  Transmission Date: 20191004
  Serious: Yes (Hospitalization)
  Sender: FDA-Public Use
  Company Number: FR-AUROBINDO-AUR-APL-2018-033549

PATIENT

DRUGS (24)
  1. METFORMIN [Suspect]
     Active Substance: METFORMIN HYDROCHLORIDE
     Indication: TYPE 2 DIABETES MELLITUS
     Dosage: 2000 MILLIGRAM
     Route: 048
     Dates: start: 2001
  2. AMAREL [Suspect]
     Active Substance: GLIMEPIRIDE
     Dosage: 1.5 MILLIGRAM, DAILY
     Route: 048
     Dates: start: 20180607, end: 20180611
  3. LANTUS [Suspect]
     Active Substance: INSULIN GLARGINE
     Dosage: 84 DOSAGE FORM, DAILY (84 U, QD)
     Route: 058
     Dates: start: 20180309, end: 20180322
  4. SOTAGLIFLOZIN [Suspect]
     Active Substance: SOTAGLIFLOZIN
     Indication: TYPE 2 DIABETES MELLITUS
     Dosage: 2 DOSAGE FORM, DAILY, 2 DF, QD
     Route: 048
     Dates: start: 20180323
  5. SOTAGLIFLOZIN [Suspect]
     Active Substance: SOTAGLIFLOZIN
     Dosage: 2 DOSAGE FORM, DAILY, 2 DF, QD
     Route: 048
     Dates: start: 20180420
  6. LANTUS [Suspect]
     Active Substance: INSULIN GLARGINE
     Dosage: 76 DOSAGE FORM, DAILY (76 U, QD)
     Route: 058
     Dates: start: 20180301, end: 20180301
  7. SOTAGLIFLOZIN [Suspect]
     Active Substance: SOTAGLIFLOZIN
     Dosage: 2 DOSAGE FORM, DAILY, 2 DF, QD
     Route: 048
     Dates: start: 20180525
  8. GLYCERYL TRINITRATE [Concomitant]
     Active Substance: NITROGLYCERIN
     Indication: MYOCARDIAL INFARCTION
     Dosage: 1 DOSAGE FORM, PRN  ; AS NECESSARY
     Route: 065
     Dates: start: 20150523
  9. TRINITRIN [Concomitant]
     Active Substance: NITROGLYCERIN
     Dosage: 1 DF PRN () ; AS NECESSARY
     Route: 050
     Dates: start: 20150523
  10. RAMIPRIL. [Concomitant]
     Active Substance: RAMIPRIL
     Indication: HYPERTENSION
     Dosage: 20 MILLIGRAM, UNK
     Route: 048
     Dates: start: 201609
  11. TRINITRIN [Concomitant]
     Active Substance: NITROGLYCERIN
     Indication: MYOCARDIAL INFARCTION
     Dosage: UNK, PRN () ; AS NECESSARY
     Route: 050
  12. AMAREL [Suspect]
     Active Substance: GLIMEPIRIDE
     Indication: TYPE 2 DIABETES MELLITUS
     Dosage: 3 MILLIGRAM, UNK
     Route: 048
     Dates: start: 2015, end: 20180601
  13. LANTUS [Suspect]
     Active Substance: INSULIN GLARGINE
     Dosage: 80 DOSAGE FORM, DAILY (80 U, QD)
     Route: 058
     Dates: start: 20180302, end: 20180308
  14. BISOPROLOL [Concomitant]
     Active Substance: BISOPROLOL
     Indication: HYPERTENSION
     Dosage: 7.5 MILLIGRAM, UNK
     Route: 048
     Dates: start: 201505
  15. REPAGLINIDE. [Suspect]
     Active Substance: REPAGLINIDE
     Indication: PRODUCT USED FOR UNKNOWN INDICATION
     Dosage: UNK
     Route: 048
     Dates: start: 20180108
  16. LEVOTHYROX [Concomitant]
     Active Substance: LEVOTHYROXINE
     Indication: HYPERTHYROIDISM
     Dosage: 75 MICROGRAM
     Route: 048
     Dates: start: 20110406
  17. AMAREL [Suspect]
     Active Substance: GLIMEPIRIDE
     Dosage: 1.5 MILLIGRAM, UNK
     Route: 048
     Dates: start: 20180608, end: 20180613
  18. AMAREL [Suspect]
     Active Substance: GLIMEPIRIDE
     Dosage: 1.5 MILLIGRAM, UNK
     Route: 048
  19. AMAREL [Suspect]
     Active Substance: GLIMEPIRIDE
     Dosage: 3 MILLIGRAM, DAILY
     Route: 048
     Dates: start: 2015, end: 20180606
  20. LANTUS [Suspect]
     Active Substance: INSULIN GLARGINE
     Indication: TYPE 2 DIABETES MELLITUS
     Dosage: 72 DOSAGE FORM, DAILY (72 U, QD)
     Route: 058
     Dates: start: 20180226, end: 20180228
  21. PARACETAMOL [Concomitant]
     Active Substance: ACETAMINOPHEN
     Indication: NASOPHARYNGITIS
     Dosage: 1 GRAM, UNK
     Route: 048
     Dates: start: 20180522, end: 20180529
  22. ASPIRINE [Concomitant]
     Active Substance: ASPIRIN
     Indication: MYOCARDIAL INFARCTION
     Dosage: 100 MILLIGRAM, UNK
     Route: 048
     Dates: start: 201609
  23. AMOXICILLIN. [Concomitant]
     Active Substance: AMOXICILLIN
     Indication: NASOPHARYNGITIS
     Dosage: 3 GRAM, UNK
     Route: 048
     Dates: start: 20180522, end: 20180529
  24. AMAREL [Suspect]
     Active Substance: GLIMEPIRIDE
     Dosage: 3 MILLIGRAM
     Route: 048
     Dates: start: 2015, end: 20180607

REACTIONS (2)
  - Hypoglycaemia [Recovered/Resolved]
  - Palpitations [Recovered/Resolved]

NARRATIVE: CASE EVENT DATE: 20180606
